FAERS Safety Report 17209078 (Version 4)
Quarter: 2021Q3

REPORT INFORMATION
  Report Type: Spontaneous
  Country: US (occurrence: US)
  Receive Date: 20191227
  Receipt Date: 20210924
  Transmission Date: 20211014
  Serious: Yes (Hospitalization, Other)
  Sender: FDA-Public Use
  Company Number: US-PFIZER INC-2019559407

PATIENT
  Age: 72 Year
  Sex: Male

DRUGS (2)
  1. LYRICA [Suspect]
     Active Substance: PREGABALIN
     Indication: PROSTATE CANCER
  2. LYRICA [Suspect]
     Active Substance: PREGABALIN
     Indication: NEUROPATHY PERIPHERAL
     Dosage: 75 MG, 1 CAPSULE THREE TIMES DAILY
     Route: 048

REACTIONS (7)
  - Musculoskeletal discomfort [Unknown]
  - Off label use [Unknown]
  - Hip fracture [Unknown]
  - Pain in extremity [Unknown]
  - Hernia [Unknown]
  - Neuropathy peripheral [Unknown]
  - Back pain [Unknown]
